FAERS Safety Report 13212485 (Version 1)
Quarter: 2017Q1

REPORT INFORMATION
  Report Type: Spontaneous
  Country: US (occurrence: US)
  Receive Date: 20170210
  Receipt Date: 20170210
  Transmission Date: 20170428
  Serious: Yes (Hospitalization, Other)
  Sender: FDA-Public Use
  Company Number: None

PATIENT
  Age: 16 Year
  Sex: Male
  Weight: 66.5 kg

DRUGS (9)
  1. ZOFRAN [Concomitant]
     Active Substance: ONDANSETRON HYDROCHLORIDE
  2. VINCRISTINE [Concomitant]
     Active Substance: VINCRISTINE
  3. BLEOMYCIN [Concomitant]
     Active Substance: BLEOMYCIN SULFATE
  4. CHEMOTHERAPY MEDICATION [Concomitant]
     Active Substance: UNSPECIFIED INGREDIENT
  5. ETOPOSIDE. [Concomitant]
     Active Substance: ETOPOSIDE
  6. DOXORUBICIN [Concomitant]
     Active Substance: DOXORUBICIN
  7. TOPOSAR [Suspect]
     Active Substance: ETOPOSIDE
     Indication: HODGKIN^S DISEASE
     Route: 042
     Dates: start: 20170119, end: 20170119
  8. PREDNISONE. [Concomitant]
     Active Substance: PREDNISONE
  9. CYCLOPHOSPHAMIDE. [Concomitant]
     Active Substance: CYCLOPHOSPHAMIDE

REACTIONS (3)
  - Dyspnoea [None]
  - Cough [None]
  - Infusion related reaction [None]

NARRATIVE: CASE EVENT DATE: 20170119
